FAERS Safety Report 11307853 (Version 1)
Quarter: 2015Q3

REPORT INFORMATION
  Report Type: Spontaneous
  Country: FR (occurrence: FR)
  Receive Date: 20150724
  Receipt Date: 20150724
  Transmission Date: 20151125
  Serious: Yes (Hospitalization)
  Sender: FDA-Public Use
  Company Number: FR-ROCHE-1612378

PATIENT
  Sex: Male

DRUGS (7)
  1. LUCENTIS [Suspect]
     Active Substance: RANIBIZUMAB
     Indication: AGE-RELATED MACULAR DEGENERATION
     Route: 065
     Dates: start: 20150406
  2. INEXIUM [Concomitant]
     Active Substance: ESOMEPRAZOLE
  3. MOVICOL [Concomitant]
     Active Substance: POLYETHYLENE GLYCOL 3350\POTASSIUM CHLORIDE\SODIUM BICARBONATE\SODIUM CHLORIDE
  4. LERCANIDIPINE [Concomitant]
     Active Substance: LERCANIDIPINE
  5. CORDARONE [Concomitant]
     Active Substance: AMIODARONE HYDROCHLORIDE
  6. DOLIPRANE [Concomitant]
     Active Substance: ACETAMINOPHEN
  7. TAHOR [Concomitant]
     Active Substance: ATORVASTATIN CALCIUM

REACTIONS (1)
  - Lung disorder [Recovered/Resolved with Sequelae]
